FAERS Safety Report 9099038 (Version 2)
Quarter: 2013Q2

REPORT INFORMATION
  Report Type: Spontaneous
  Country: US (occurrence: US)
  Receive Date: 20130213
  Receipt Date: 20130401
  Transmission Date: 20140414
  Serious: No
  Sender: FDA-Public Use
  Company Number: US-PFIZER INC-2013054919

PATIENT
  Age: 49 Year
  Sex: Female
  Weight: 86.16 kg

DRUGS (2)
  1. ADVIL COLD AND SINUS [Suspect]
     Indication: NASAL CONGESTION
     Dosage: UNK, 2X/DAY
     Route: 048
     Dates: start: 20130206, end: 20130207
  2. ADVIL COLD AND SINUS [Suspect]
     Indication: SINUS HEADACHE

REACTIONS (4)
  - Drug ineffective [Unknown]
  - Dyspnoea [Unknown]
  - Nasal congestion [Unknown]
  - Poor quality sleep [Unknown]
